FAERS Safety Report 8151683-4 (Version None)
Quarter: 2012Q1

REPORT INFORMATION
  Report Type: 
  Country: None (occurrence: None)
  Receive Date: 20120221
  Receipt Date: 20120208
  Transmission Date: 20120608
  Serious: Yes (Other)
  Sender: FDA-Public Use
  Company Number: DE-AMGEN-DEUSP2012009356

PATIENT
  Age: 71 Year
  Sex: Female

DRUGS (2)
  1. ENBREL [Suspect]
     Indication: RHEUMATOID ARTHRITIS
     Dosage: 25 MG, 2X/WEEK
     Dates: start: 20090901
  2. ENBREL [Suspect]
     Dosage: UNK

REACTIONS (4)
  - PRURITUS [None]
  - HAEMATOMA [None]
  - BREAST HAEMATOMA [None]
  - INTRA-ABDOMINAL HAEMATOMA [None]
